FAERS Safety Report 10044680 (Version 1)
Quarter: 2014Q1

REPORT INFORMATION
  Report Type: Spontaneous
  Country: US (occurrence: US)
  Receive Date: 20140328
  Receipt Date: 20140328
  Transmission Date: 20141002
  Serious: No
  Sender: FDA-Public Use
  Company Number: US-LUNDBECK-DKLU1097955

PATIENT
  Age: 32 Year
  Sex: Male

DRUGS (1)
  1. SABRIL (TABLET) [Suspect]
     Indication: GRAND MAL CONVULSION
     Route: 048
     Dates: start: 20121220, end: 20140225

REACTIONS (1)
  - Drug ineffective [Unknown]
